FAERS Safety Report 24383152 (Version 1)
Quarter: 2024Q4

REPORT INFORMATION
  Report Type: Spontaneous
  Country: US (occurrence: US)
  Receive Date: 20241001
  Receipt Date: 20241001
  Transmission Date: 20250115
  Serious: No
  Sender: CATALYST PHARMA
  Company Number: US-CATALYST PHARMACEUTICALS-US-CATA-24-00465

PATIENT
  Age: 16 Year
  Sex: Male
  Weight: 69.3 kg

DRUGS (24)
  1. AGAMREE [Suspect]
     Active Substance: VAMOROLONE
     Indication: Duchenne muscular dystrophy
     Dosage: 7.5 ML ONCE DAILY (300 MG)
     Route: 048
     Dates: start: 20240314
  2. TENORMIN [Concomitant]
     Active Substance: ATENOLOL
     Indication: Product used for unknown indication
     Dosage: 25 MG DAILY (1 TABLET BY MOUTH DAILY)
     Route: 048
     Dates: start: 20230726
  3. ROCALTROL [Concomitant]
     Active Substance: CALCITRIOL
     Indication: Product used for unknown indication
     Dosage: 1 CAPSULE BY MOUTH 2 TIMES A DAY FOR 7 DAYS
     Route: 048
     Dates: start: 20240517
  4. OSCAL [Concomitant]
     Active Substance: CALCIUM CARBONATE
     Indication: Product used for unknown indication
     Dosage: 1 TABLET BY MOUTH 3 TIMES A DAY FOR 7 DAYS
     Route: 048
     Dates: start: 20240517
  5. BENADRYL [Concomitant]
     Active Substance: DIPHENHYDRAMINE HYDROCHLORIDE
     Indication: Migraine
     Dosage: 25 MG AS NEEDED (ONE CAPSULE BY MOUTH EVERY 6 HOURS AS NEEDED; TAKE WITH THE COMPAZINE)
     Route: 048
     Dates: start: 20231005
  6. AIMOVIG [Concomitant]
     Active Substance: ERENUMAB-AOOE
     Indication: Product used for unknown indication
     Dosage: INJECT 70 MG INTO THE SKIN EVERY 30 DAYS
     Route: 003
     Dates: start: 20231226
  7. TORADOL [Concomitant]
     Active Substance: KETOROLAC TROMETHAMINE
     Indication: Pain
     Dosage: 10 MG AS NEEDED (ONE TABLET BY MOUTH EVERY 6 HOURS AS NEEDED; GIVE WITH COMPAZINE AND BENADRYL)
     Route: 048
     Dates: start: 20240131
  8. ALDACTONE [Concomitant]
     Active Substance: SPIRONOLACTONE
     Indication: Product used for unknown indication
     Dosage: 25 MG DAILY (1 TABLET BY MOUTH DAILY)
     Route: 048
     Dates: start: 20230705
  9. EASY GLIDE LUER LOCK SYRINGE [Concomitant]
     Indication: Product used for unknown indication
  10. DEPOTESTOSTERONE CYPIONATE [Concomitant]
     Indication: Product used for unknown indication
     Dosage: 0.15 ML INTO THE SKIN EVERY 7 DAY
     Route: 058
     Dates: start: 20240522
  11. TOPAMAX [Concomitant]
     Active Substance: TOPIRAMATE
     Indication: Product used for unknown indication
     Dosage: 150 MG TWICE A DAY (1.5 TABLETS BY MOUTH 2 TIMES DAILY (1.5 PILL IN THE MORNING; 1.5 PILLS AT NIGHT)
     Route: 048
     Dates: start: 20240111
  12. EFFEXOR XR [Concomitant]
     Active Substance: VENLAFAXINE HYDROCHLORIDE
     Indication: Product used for unknown indication
     Dosage: 187.5 MG DAILY
     Route: 048
  13. EFFEXOR XR [Concomitant]
     Active Substance: VENLAFAXINE HYDROCHLORIDE
     Dosage: 1 CAPSULE BY MOUTH DAILY
     Route: 048
     Dates: start: 20220525
  14. VITAMIN D3 [Concomitant]
     Active Substance: CHOLECALCIFEROL
     Indication: Product used for unknown indication
     Dosage: 125 MCG DAILY
     Route: 048
  15. ZOMIG [Concomitant]
     Active Substance: ZOLMITRIPTAN
     Indication: Migraine
     Dosage: 5 MG AS NEEDED (ONE SPRAY AT THE START OF A MIGRAINE; MAY REPEAT IN 2 HOURS IF NEEDED)
     Route: 045
     Dates: start: 20240111
  16. ZESTRIL [Concomitant]
     Active Substance: LISINOPRIL
     Indication: Product used for unknown indication
     Dosage: 5 MG DAILY (ONE TABLET BY MOUTH DAILY)
     Route: 048
     Dates: start: 20231024
  17. MAGNESIUM OXIDE [Concomitant]
     Active Substance: MAGNESIUM OXIDE
     Indication: Product used for unknown indication
     Dosage: 400 MG TWICE A DAY (1 TABLET BY MOUTH 2 TIMES DAILY)
     Route: 048
     Dates: start: 20240111
  18. QUILLICHEW ER [Concomitant]
     Active Substance: METHYLPHENIDATE HYDROCHLORIDE
     Indication: Product used for unknown indication
     Dosage: 40 MG IN MORNING AND 20 MG AT 3:00 PM
     Route: 048
  19. ZOFRAN-ODT [Concomitant]
     Indication: Nausea
     Dosage: 4 MG AS NEEDED (DISSOLVE ONE TABLET ON TONGUE EVERY 8 HOURS AS NEEDED; TAKE WITH THE SUMATRIPTAN)
     Route: 048
     Dates: start: 20240112
  20. ZOFRAN-ODT [Concomitant]
     Indication: Headache
  21. COMPAZINE [Concomitant]
     Active Substance: PROCHLORPERAZINE MALEATE
     Indication: Migraine
     Dosage: 5 MG AS NEEDED (ONE TABLET BY MOUTH EVERY 6 HOURS AS NEEDED; TAKE WITH 25 MG BENADRYL. NO MORE THAN
     Route: 048
     Dates: start: 20240223
  22. MELATONIN [Concomitant]
     Active Substance: MELATONIN
     Indication: Product used for unknown indication
     Dosage: 6 MG DAILY
     Route: 065
  23. CLONIDINE [Concomitant]
     Active Substance: CLONIDINE
     Indication: Product used for unknown indication
     Dosage: 0.1 MG TWICE A DAY
     Route: 065
  24. CETIRIZINE [Concomitant]
     Active Substance: CETIRIZINE HYDROCHLORIDE
     Indication: Product used for unknown indication
     Dosage: 10 MG DAILY
     Route: 065

REACTIONS (1)
  - Weight increased [Not Recovered/Not Resolved]

NARRATIVE: CASE EVENT DATE: 20240301
